FAERS Safety Report 19433094 (Version 1)
Quarter: 2021Q2

REPORT INFORMATION
  Report Type: Spontaneous
  Country: US (occurrence: US)
  Receive Date: 20210617
  Receipt Date: 20210617
  Transmission Date: 20210717
  Serious: Yes (Other)
  Sender: FDA-Public Use
  Company Number: US-ELI_LILLY_AND_COMPANY-US202106003889

PATIENT
  Sex: Female

DRUGS (2)
  1. HUMALOG [Suspect]
     Active Substance: INSULIN LISPRO
     Dosage: 23 UNITS BASAL INSULIN; 5?10 UNITS BOLUS DOSE WITH EACH MEAL REPORTING THIS IS USUALLY 3 TIMES/DAY
     Route: 065
  2. HUMALOG [Suspect]
     Active Substance: INSULIN LISPRO
     Indication: DIABETES MELLITUS
     Dosage: 23 U BASAL INSULIN; 5?10 UNITS BOLUS DOSE WITH EACH MEAL REPORTING THIS IS USUALLY 3 TIMES/DAY
     Route: 065
     Dates: start: 1971

REACTIONS (4)
  - Myocardial infarction [Unknown]
  - Cardiac disorder [Unknown]
  - Myocardial infarction [Unknown]
  - Breast cancer [Unknown]

NARRATIVE: CASE EVENT DATE: 1989
